FAERS Safety Report 20625010 (Version 1)
Quarter: 2022Q1

REPORT INFORMATION
  Report Type: Spontaneous
  Country: JP (occurrence: JP)
  Receive Date: 20220323
  Receipt Date: 20220323
  Transmission Date: 20220423
  Serious: Yes (Hospitalization, Other)
  Sender: FDA-Public Use
  Company Number: JP-SUN PHARMACEUTICAL INDUSTRIES LTD-2022R1-330108

PATIENT
  Age: 11 Year
  Sex: Female

DRUGS (1)
  1. DOXORUBICIN [Suspect]
     Active Substance: DOXORUBICIN
     Indication: Osteosarcoma
     Dosage: 450 MILLIGRAM/SQ. METER, UNK
     Route: 065

REACTIONS (3)
  - Cardiomyopathy [Recovering/Resolving]
  - Left ventricular failure [Recovering/Resolving]
  - Right ventricular failure [Recovering/Resolving]
